FAERS Safety Report 7140956-X (Version None)
Quarter: 2010Q4

REPORT INFORMATION
  Report Type: 
  Country: None (occurrence: None)
  Receive Date: 20101201
  Receipt Date: 20101201
  Transmission Date: 20110411
  Serious: No
  Sender: FDA-Public Use
  Company Number: None

PATIENT
  Age: 43 Year
  Sex: Female
  Weight: 66.6788 kg

DRUGS (1)
  1. ZARAH 3/0.03 WATSON [Suspect]

REACTIONS (3)
  - ACNE [None]
  - FURUNCLE [None]
  - NAUSEA [None]
